FAERS Safety Report 25732907 (Version 1)
Quarter: 2025Q3

REPORT INFORMATION
  Report Type: Spontaneous
  Country: US (occurrence: US)
  Receive Date: 20250828
  Receipt Date: 20250828
  Transmission Date: 20251020
  Serious: Yes (Hospitalization)
  Sender: ROCHE
  Company Number: US-ROCHE-10000371277

PATIENT
  Age: 76 Year
  Sex: Male

DRUGS (34)
  1. XOLAIR [Suspect]
     Active Substance: OMALIZUMAB
     Indication: Product used for unknown indication
     Route: 065
  2. AMLODIPINE [Concomitant]
     Active Substance: AMLODIPINE BESYLATE
  3. APREPITANT [Concomitant]
     Active Substance: APREPITANT
  4. CLOBETASOL [Concomitant]
     Active Substance: CLOBETASOL
  5. BENADRYL [Concomitant]
     Active Substance: DIPHENHYDRAMINE HYDROCHLORIDE
  6. CYPROHEPTADINE [Concomitant]
     Active Substance: CYPROHEPTADINE
  7. DAPSONE [Concomitant]
     Active Substance: DAPSONE
  8. DOMEBORO [Concomitant]
     Active Substance: ALUMINUM SULFATE TETRADECAHYDRATE\CALCIUM ACETATE MONOHYDRATE
  9. DOXYCYCLINE [Concomitant]
     Active Substance: DOXYCYCLINE
  10. DUPIXENT [Concomitant]
     Active Substance: DUPILUMAB
  11. EUCRISA [Concomitant]
     Active Substance: CRISABOROLE
  12. FUROSEMIDE [Concomitant]
     Active Substance: FUROSEMIDE
  13. HUMALOG [Concomitant]
     Active Substance: INSULIN LISPRO
  14. HYDROCORTISONE [Concomitant]
     Active Substance: HYDROCORTISONE
  15. HYDROXYZINE [Concomitant]
     Active Substance: HYDROXYZINE HYDROCHLORIDE
  16. KETOCONAZOLE [Concomitant]
     Active Substance: KETOCONAZOLE
  17. LANTUS SOLOSTAR [Concomitant]
     Active Substance: INSULIN GLARGINE
  18. METFORMIN [Concomitant]
     Active Substance: METFORMIN HYDROCHLORIDE
  19. METOPROLOL SUCCINATE [Concomitant]
     Active Substance: METOPROLOL SUCCINATE
  20. MONTELUKAST [Concomitant]
     Active Substance: MONTELUKAST
  21. MUPIROCIN [Concomitant]
     Active Substance: MUPIROCIN
  22. NIACINAMIDE [Concomitant]
     Active Substance: NIACINAMIDE
  23. OXYCODONE [Concomitant]
     Active Substance: OXYCODONE
  24. PAROXETINE [Concomitant]
     Active Substance: PAROXETINE
  25. PIMECROLIMUS [Concomitant]
     Active Substance: PIMECROLIMUS
  26. POTASSIUM ACETATE [Concomitant]
     Active Substance: POTASSIUM ACETATE
  27. POTASSIUM CHLORIDE [Concomitant]
     Active Substance: POTASSIUM CHLORIDE
  28. PREDNISONE [Concomitant]
     Active Substance: PREDNISONE
  29. SIMVASTATIN [Concomitant]
     Active Substance: SIMVASTATIN
  30. TERAZOSIN [Concomitant]
     Active Substance: TERAZOSIN HYDROCHLORIDE
  31. TRIAMCINOLONE [Concomitant]
     Active Substance: TRIAMCINOLONE
  32. TRIAMTERENE [Concomitant]
     Active Substance: TRIAMTERENE
  33. VANICREAM [Concomitant]
     Active Substance: TITANIUM DIOXIDE\ZINC OXIDE
  34. ZINC SULFATE [Concomitant]
     Active Substance: ZINC SULFATE

REACTIONS (3)
  - Pemphigoid [Unknown]
  - Skin wound [Unknown]
  - Pruritus [Unknown]
